FAERS Safety Report 23630846 (Version 1)
Quarter: 2024Q1

REPORT INFORMATION
  Report Type: Spontaneous
  Country: US (occurrence: US)
  Receive Date: 20240314
  Receipt Date: 20240314
  Transmission Date: 20240410
  Serious: No
  Sender: FDA-Public Use
  Company Number: US-JNJFOC-20240267298

PATIENT

DRUGS (19)
  1. TYLENOL [Suspect]
     Active Substance: ACETAMINOPHEN
     Indication: Product used for unknown indication
     Route: 065
  2. PANTOPRAZOLE [Concomitant]
     Active Substance: PANTOPRAZOLE
     Indication: Product used for unknown indication
     Route: 065
  3. SUCRALFATE [Concomitant]
     Active Substance: SUCRALFATE
     Indication: Product used for unknown indication
     Dosage: TWO TABLETS TIMES DAILY AND ONE AT BEDTIME
     Route: 065
  4. LISINOPRIL [Concomitant]
     Active Substance: LISINOPRIL
     Indication: Hypertension
     Dosage: 40MG ONCE DAILY AT BEDTIME
     Route: 065
  5. MONTELUKAST [Concomitant]
     Active Substance: MONTELUKAST SODIUM
     Indication: Sinus congestion
     Dosage: 10MG AT BEDTIME
     Route: 065
     Dates: start: 2021
  6. NIFEDIPINE [Concomitant]
     Active Substance: NIFEDIPINE
     Indication: Blood pressure measurement
     Dosage: 60MG TABLET DAILY
     Route: 065
  7. POTASSIUM CHLORIDE [Concomitant]
     Active Substance: POTASSIUM CHLORIDE
     Indication: Product used for unknown indication
     Dosage: 8MEQ ONE TIME DAILY
     Route: 065
     Dates: start: 2021
  8. FUROSEMIDE [Concomitant]
     Active Substance: FUROSEMIDE
     Indication: Oedema
     Dosage: 20MG TABLET IN THE MORNING
     Route: 065
     Dates: start: 2021
  9. ATORVASTATIN [Concomitant]
     Active Substance: ATORVASTATIN
     Indication: Blood cholesterol
     Dosage: 40MG ONE TIME A DAY AT BEDTIME
     Route: 065
     Dates: start: 2021
  10. FENOFIBRATE [Concomitant]
     Active Substance: FENOFIBRATE
     Indication: Blood cholesterol
     Dosage: 145MG ONE TIME DAILY IN THE MORNING
     Route: 065
     Dates: start: 2022
  11. ASPIRIN [Concomitant]
     Active Substance: ASPIRIN
     Indication: Anticoagulant therapy
     Dosage: 0.82 UNKNOWN UNITS ONCE A DAY
     Route: 065
     Dates: start: 2021
  12. DICLOFENAC [Concomitant]
     Active Substance: DICLOFENAC
     Indication: Pain
     Route: 065
  13. FLONASE [Concomitant]
     Active Substance: FLUTICASONE PROPIONATE
     Indication: Product used for unknown indication
     Dosage: ONE SPRAY IN EACH NOSTRIL TWO TIMES DAILY AS NEEDED
     Route: 045
  14. PROCARDIA [Concomitant]
     Active Substance: NIFEDIPINE
     Indication: Cardiac disorder
     Route: 065
     Dates: start: 2021
  15. MELATONIN [Concomitant]
     Active Substance: MELATONIN
     Indication: Insomnia
     Dosage: 5MG AT 5PM AND THEN 5MG AT 10PM
     Route: 065
     Dates: start: 2022
  16. METOPROLOL [Concomitant]
     Active Substance: METOPROLOL
     Indication: Product used for unknown indication
     Dosage: WAS TAKING 200MG OF METOPROLOL TWICE A DAY
     Route: 065
  17. OMEPRAZOLE [Concomitant]
     Active Substance: OMEPRAZOLE
     Indication: Product used for unknown indication
     Dosage: TAKE 2 TABLETS TIMES DAILY
     Route: 065
  18. BENADRYL [Concomitant]
     Active Substance: DIPHENHYDRAMINE HYDROCHLORIDE
     Indication: Product used for unknown indication
     Route: 065
  19. BUSPIRONE [Concomitant]
     Active Substance: BUSPIRONE HYDROCHLORIDE
     Indication: Serotonin syndrome
     Dosage: TOOK TWO PILLS OF BUSPIRONE 5MG
     Route: 065

REACTIONS (1)
  - Incoherent [Unknown]
